FAERS Safety Report 11520554 (Version 2)
Quarter: 2016Q1

REPORT INFORMATION
  Report Type: Spontaneous
  Country: US (occurrence: US)
  Receive Date: 20150918
  Receipt Date: 20160125
  Transmission Date: 20160525
  Serious: No
  Sender: FDA-Public Use
  Company Number: US-PFIZER INC-2015299001

PATIENT
  Age: 32 Year
  Sex: Female
  Weight: 47.26 kg

DRUGS (2)
  1. XGEVA [Concomitant]
     Active Substance: DENOSUMAB
     Dosage: UNK, MONTHLY
  2. IBRANCE [Suspect]
     Active Substance: PALBOCICLIB
     Indication: BREAST CANCER STAGE IV
     Dosage: 125 MG DAY 1-21 Q 28 DAYS)
     Route: 048
     Dates: start: 20150728, end: 2015

REACTIONS (3)
  - White blood cell count decreased [Unknown]
  - Blood calcium abnormal [Unknown]
  - Blood potassium decreased [Unknown]
